FAERS Safety Report 25156084 (Version 1)
Quarter: 2025Q2

REPORT INFORMATION
  Report Type: Spontaneous
  Country: FR (occurrence: FR)
  Receive Date: 20250403
  Receipt Date: 20250403
  Transmission Date: 20250716
  Serious: Yes (Hospitalization, Disabling, Other)
  Sender: BRISTOL MYERS SQUIBB
  Company Number: None

PATIENT
  Age: 44 Year
  Sex: Male
  Weight: 75 kg

DRUGS (2)
  1. OPDIVO [Suspect]
     Active Substance: NIVOLUMAB
     Indication: Metastatic malignant melanoma
     Dosage: 3 COURSES
     Route: 042
     Dates: start: 20240322, end: 20240502
  2. YERVOY [Suspect]
     Active Substance: IPILIMUMAB
     Indication: Metastatic malignant melanoma
     Dosage: 3 COURSES
     Route: 042
     Dates: start: 20240322, end: 20240502

REACTIONS (5)
  - Maculopathy [Recovered/Resolved with Sequelae]
  - Guillain-Barre syndrome [Recovering/Resolving]
  - Hepatitis acute [Recovered/Resolved]
  - Thyroiditis [Not Recovered/Not Resolved]
  - Eczema [Recovering/Resolving]

NARRATIVE: CASE EVENT DATE: 20240501
